FAERS Safety Report 4639555-0 (Version None)
Quarter: 2005Q2

REPORT INFORMATION
  Report Type: 
  Country: None (occurrence: None)
  Receive Date: 20050415
  Receipt Date: 20050331
  Transmission Date: 20051028
  Serious: Yes (Disabling)
  Sender: FDA-Public Use
  Company Number: 200509281

PATIENT
  Age: 2 Year
  Sex: Female
  Weight: 14.5 kg

DRUGS (7)
  1. HAEMATE HS (FACTOR VIII (ANTIHAEMOPHILIC FACTOR) (ZLB BEHRING) [Suspect]
     Indication: ADENOIDECTOMY
     Dosage: 1000 IU DAILY IV; 750 IU DAILY IV
     Route: 040
     Dates: start: 20040723, end: 20040725
  2. HAEMATE HS (FACTOR VIII (ANTIHAEMOPHILIC FACTOR) (ZLB BEHRING) [Suspect]
     Indication: VON WILLEBRAND'S DISEASE
     Dosage: 1000 IU DAILY IV; 750 IU DAILY IV
     Route: 040
     Dates: start: 20040723, end: 20040725
  3. HAEMATE HS (FACTOR VIII (ANTIHAEMOPHILIC FACTOR) (ZLB BEHRING) [Suspect]
     Indication: ADENOIDECTOMY
     Dosage: 1000 IU DAILY IV; 750 IU DAILY IV
     Route: 040
     Dates: start: 20040726, end: 20040801
  4. HAEMATE HS (FACTOR VIII (ANTIHAEMOPHILIC FACTOR) (ZLB BEHRING) [Suspect]
     Indication: VON WILLEBRAND'S DISEASE
     Dosage: 1000 IU DAILY IV; 750 IU DAILY IV
     Route: 040
     Dates: start: 20040726, end: 20040801
  5. HAEMATE HS (FACTOR VIII (ANTIHAEMOPHILIC FACTOR) (ZLB BEHRING) [Suspect]
  6. CYCLOKAPRON [Concomitant]
  7. OTRIVEN [Concomitant]

REACTIONS (2)
  - ANTI-HBC ANTIBODY POSITIVE [None]
  - HEPATITIS A ANTIBODY POSITIVE [None]
